FAERS Safety Report 13601559 (Version 3)
Quarter: 2017Q3

REPORT INFORMATION
  Report Type: Spontaneous
  Country: US (occurrence: US)
  Receive Date: 20170601
  Receipt Date: 20170815
  Transmission Date: 20171127
  Serious: Yes (Other)
  Sender: FDA-Public Use
  Company Number: US-ELI_LILLY_AND_COMPANY-US201705009003

PATIENT
  Sex: Female

DRUGS (1)
  1. HUMALOG [Suspect]
     Active Substance: INSULIN LISPRO
     Indication: PRODUCT USED FOR UNKNOWN INDICATION
     Dosage: 24 U, DAILY WITH DINNER
     Route: 065
     Dates: start: 2016

REACTIONS (4)
  - Product storage error [Unknown]
  - Ocular discomfort [Not Recovered/Not Resolved]
  - Basal cell carcinoma [Recovering/Resolving]
  - Visual impairment [Not Recovered/Not Resolved]
